FAERS Safety Report 21573950 (Version 12)
Quarter: 2022Q4

REPORT INFORMATION
  Report Type: Report from Study
  Country: CL (occurrence: None)
  Receive Date: 20221109
  Receipt Date: 20221220
  Transmission Date: 20230112
  Serious: Yes (Hospitalization)
  Sender: FDA-Public Use
  Company Number: CL-Eisai Medical Research-EC-2022-127493

PATIENT
  Age: 72 Year
  Sex: Female
  Weight: 61.7 kg

DRUGS (13)
  1. LENVATINIB [Suspect]
     Active Substance: LENVATINIB
     Indication: Oesophageal cancer metastatic
     Dosage: STARTING DOSE AT 8 MG, FLUCTUATED DOSAGE
     Route: 048
     Dates: start: 20220630, end: 20221101
  2. LENVATINIB [Suspect]
     Active Substance: LENVATINIB
     Route: 048
     Dates: start: 20221117
  3. PEMBROLIZUMAB [Suspect]
     Active Substance: PEMBROLIZUMAB
     Indication: Oesophageal cancer metastatic
     Route: 042
     Dates: start: 20220630, end: 20221005
  4. PEMBROLIZUMAB [Suspect]
     Active Substance: PEMBROLIZUMAB
     Route: 042
     Dates: start: 20221117
  5. LEUCOVORIN [Suspect]
     Active Substance: LEUCOVORIN
     Indication: Oesophageal cancer metastatic
     Dosage: DOSE UNKNOWN
     Route: 042
     Dates: start: 20220630, end: 20220907
  6. OXALIPLATIN [Suspect]
     Active Substance: OXALIPLATIN
     Indication: Oesophageal cancer metastatic
     Dosage: DOSE UNKNOWN
     Route: 042
     Dates: start: 20220630, end: 20220907
  7. FLUOROURACIL [Suspect]
     Active Substance: FLUOROURACIL
     Indication: Oesophageal cancer metastatic
     Dosage: DOSE UNKNOWN
     Route: 040
     Dates: start: 20220630, end: 20220907
  8. FLUOROURACIL [Suspect]
     Active Substance: FLUOROURACIL
     Dosage: DOSE UNKNOWN
     Route: 042
     Dates: start: 20220630, end: 20220909
  9. METOCLOPRAMIDE [Concomitant]
     Active Substance: METOCLOPRAMIDE
     Dates: start: 20220712
  10. ACETAMINOPHEN [Concomitant]
     Active Substance: ACETAMINOPHEN
     Dates: start: 20221014
  11. CELECOXIB [Concomitant]
     Active Substance: CELECOXIB
     Dates: start: 20221014
  12. PREGABALIN [Concomitant]
     Active Substance: PREGABALIN
     Dates: start: 20221014
  13. HYDROCHLOROTHIAZIDE\TELMISARTAN [Concomitant]
     Active Substance: HYDROCHLOROTHIAZIDE\TELMISARTAN
     Dates: start: 20221017

REACTIONS (1)
  - Pneumonia [Recovered/Resolved]

NARRATIVE: CASE EVENT DATE: 20221101
